FAERS Safety Report 8411828-5 (Version None)
Quarter: 2012Q2

REPORT INFORMATION
  Report Type: 
  Country: None (occurrence: None)
  Receive Date: 20120605
  Receipt Date: 20120516
  Transmission Date: 20120825
  Serious: No
  Sender: FDA-Public Use
  Company Number: US-AMGEN-USASP2012029399

PATIENT
  Age: 62 Year
  Sex: Female

DRUGS (1)
  1. ENBREL [Suspect]
     Indication: RHEUMATOID ARTHRITIS
     Dosage: 50 MG, QWK
     Dates: start: 20120328

REACTIONS (7)
  - BLOOD GLUCOSE DECREASED [None]
  - INFLAMMATION [None]
  - INJECTION SITE ERYTHEMA [None]
  - INJECTION SITE PAIN [None]
  - RHEUMATOID ARTHRITIS [None]
  - INJECTION SITE PRURITUS [None]
  - INJECTION SITE WARMTH [None]
